FAERS Safety Report 9357085 (Version 2)
Quarter: 2013Q3

REPORT INFORMATION
  Report Type: Spontaneous
  Country: US (occurrence: US)
  Receive Date: 20130620
  Receipt Date: 20130704
  Transmission Date: 20140515
  Serious: Yes (Hospitalization)
  Sender: FDA-Public Use
  Company Number: US-BIOGENIDEC-2013BI053061

PATIENT
  Age: 69 Year
  Sex: Female

DRUGS (2)
  1. AVONEX [Suspect]
     Indication: MULTIPLE SCLEROSIS
     Route: 030
     Dates: start: 20020404, end: 2009
  2. AVONEX [Suspect]
     Indication: MULTIPLE SCLEROSIS
     Route: 030
     Dates: start: 2009

REACTIONS (8)
  - Transient ischaemic attack [Recovered/Resolved]
  - Atrial fibrillation [Recovered/Resolved]
  - Fall [Recovered/Resolved]
  - Hypotonia [Not Recovered/Not Resolved]
  - Multiple sclerosis [Unknown]
  - Balance disorder [Recovered/Resolved]
  - Hypoaesthesia [Recovered/Resolved]
  - Hypertension [Unknown]
